FAERS Safety Report 17969565 (Version 9)
Quarter: 2020Q4

REPORT INFORMATION
  Report Type: Report from Study
  Country: JP (occurrence: JP)
  Receive Date: 20200701
  Receipt Date: 20201020
  Transmission Date: 20210113
  Serious: Yes (Hospitalization)
  Sender: FDA-Public Use
  Company Number: JP-PFIZER INC-2020250435

PATIENT
  Age: 57 Year
  Sex: Male
  Weight: 68.9 kg

DRUGS (18)
  1. ENCORAFENIB [Suspect]
     Active Substance: ENCORAFENIB
     Dosage: 225 MG, 1X/DAY, CYCLIC
     Route: 048
  2. CETUXIMAB. [Suspect]
     Active Substance: CETUXIMAB
     Indication: COLON CANCER
     Dosage: 450 MG, CYCLIC
     Route: 041
     Dates: start: 20200610
  3. AMLODIN [Concomitant]
     Active Substance: AMLODIPINE BESYLATE
     Dosage: UNK
     Dates: start: 20200326
  4. MIYA-BM [Concomitant]
     Active Substance: CLOSTRIDIUM BUTYRICUM SPORES STRAIN M-55
     Dosage: UNK
     Dates: start: 201909
  5. LOXOPROFEN NA [Concomitant]
     Active Substance: LOXOPROFEN SODIUM
     Dosage: UNK
     Dates: start: 201909
  6. LYRICA [Concomitant]
     Active Substance: PREGABALIN
     Dosage: UNK
     Dates: start: 20200430
  7. ENCORAFENIB [Suspect]
     Active Substance: ENCORAFENIB
     Indication: COLON CANCER
     Dosage: 300 MG, DAILY, CYCLIC
     Route: 048
     Dates: start: 20200610
  8. ENCORAFENIB [Suspect]
     Active Substance: ENCORAFENIB
     Dosage: UNK
     Route: 048
     Dates: start: 20200715
  9. POLAPREZINC [Concomitant]
     Active Substance: POLAPREZINC
     Dosage: UNK
     Dates: start: 201909
  10. OXYCONTIN [Concomitant]
     Active Substance: OXYCODONE HYDROCHLORIDE
     Dosage: UNK
     Dates: start: 201909
  11. TAKECAB [Concomitant]
     Active Substance: VONOPRAZAN FUMARATE
     Dosage: UNK
     Dates: start: 201909
  12. BINIMETINIB [Suspect]
     Active Substance: BINIMETINIB
     Indication: COLON CANCER
     Dosage: 45 MG, 2X/DAY, CYCLIC
     Route: 048
     Dates: start: 20200610
  13. MAGNESIUM OXIDE. [Concomitant]
     Active Substance: MAGNESIUM OXIDE
     Dosage: UNK
     Dates: start: 201909
  14. BINIMETINIB [Suspect]
     Active Substance: BINIMETINIB
     Dosage: 30 MG, 2X/DAY, CYCLIC
     Route: 048
  15. OXINORM (OXYCODONE HYDROCHLORIDE) [Concomitant]
     Active Substance: OXYCODONE HYDROCHLORIDE
     Dosage: POWDER (EXCEPT [DPO])
     Dates: start: 201909
  16. FUROSEMIDE. [Concomitant]
     Active Substance: FUROSEMIDE
     Dosage: UNK
     Dates: start: 20200603
  17. CETUXIMAB. [Suspect]
     Active Substance: CETUXIMAB
     Dosage: UNK, CYCLIC
     Route: 041
     Dates: start: 20200715
  18. SYMPROIC [Concomitant]
     Active Substance: NALDEMEDINE
     Dosage: UNK
     Dates: start: 201909

REACTIONS (1)
  - Renal impairment [Recovering/Resolving]

NARRATIVE: CASE EVENT DATE: 20200624
